FAERS Safety Report 18913258 (Version 2)
Quarter: 2021Q1

REPORT INFORMATION
  Report Type: Report from Study
  Country: None (occurrence: US)
  Receive Date: 20210219
  Receipt Date: 20210309
  Transmission Date: 20210420
  Serious: Yes (Other)
  Sender: FDA-Public Use
  Company Number: US-ABBVIE-21K-163-3740479-00

PATIENT
  Age: 31 Year
  Sex: Male
  Weight: 102.15 kg

DRUGS (3)
  1. ACITRETIN. [Concomitant]
     Active Substance: ACITRETIN
     Indication: PRODUCT USED FOR UNKNOWN INDICATION
  2. HUMIRA [Suspect]
     Active Substance: ADALIMUMAB
     Indication: HIDRADENITIS
     Route: 058
     Dates: start: 2016
  3. HUMIRA [Suspect]
     Active Substance: ADALIMUMAB
     Route: 058

REACTIONS (13)
  - Suture rupture [Not Recovered/Not Resolved]
  - Wound complication [Not Recovered/Not Resolved]
  - Scar [Not Recovered/Not Resolved]
  - Therapeutic product effect decreased [Not Recovered/Not Resolved]
  - Rash [Unknown]
  - Bacterial infection [Unknown]
  - Dermal cyst [Recovering/Resolving]
  - Wound secretion [Recovering/Resolving]
  - Weight decreased [Not Recovered/Not Resolved]
  - Skin disorder [Unknown]
  - Axillary pain [Not Recovered/Not Resolved]
  - Inflammation [Not Recovered/Not Resolved]
  - Polyp [Unknown]

NARRATIVE: CASE EVENT DATE: 2018
